FAERS Safety Report 10170106 (Version 1)
Quarter: 2014Q2

REPORT INFORMATION
  Report Type: Spontaneous
  Country: US (occurrence: US)
  Receive Date: 20140513
  Receipt Date: 20140513
  Transmission Date: 20141212
  Serious: Yes (Other)
  Sender: FDA-Public Use
  Company Number: US-GLAXOSMITHKLINE-A1072635A

PATIENT
  Age: 82 Year
  Sex: Male

DRUGS (7)
  1. ADVAIR [Suspect]
     Indication: PRODUCT USED FOR UNKNOWN INDICATION
     Dosage: 1PUFF TWICE PER DAY
     Route: 055
  2. FINASTERID [Concomitant]
  3. DOXAZOSIN [Concomitant]
  4. PRAVASTATIN [Concomitant]
  5. METOPROLOL [Concomitant]
  6. LOSARTAN [Concomitant]
  7. COUMADIN [Concomitant]

REACTIONS (2)
  - Bladder cancer [Unknown]
  - Dysphonia [Not Recovered/Not Resolved]
